FAERS Safety Report 5167814-4 (Version None)
Quarter: 2006Q4

REPORT INFORMATION
  Report Type: 
  Country: None (occurrence: None)
  Receive Date: 20061208
  Receipt Date: 20061127
  Transmission Date: 20070319
  Serious: Yes (Other)
  Sender: FDA-Public Use
  Company Number: PHBS2006BE18602

PATIENT
  Age: 74 Year
  Sex: Female

DRUGS (14)
  1. ZOMETA [Suspect]
     Indication: HUMERUS FRACTURE
     Dosage: 4 MG, EVERY 4 WEEKS
     Route: 042
     Dates: start: 20030701, end: 20050901
  2. VENLAFAXINE HCL [Concomitant]
     Indication: DEPRESSION
     Dosage: 150 MG/D
     Route: 048
     Dates: start: 20050301
  3. AMISULPRIDE [Concomitant]
     Indication: ANXIETY
     Dosage: 50 MG, QD
     Route: 065
     Dates: start: 20050501
  4. VINCRISTINE + ADRIAMYCIN + DEXAMETHASONE [Concomitant]
     Route: 065
     Dates: start: 20030701, end: 20030901
  5. DEXAMETHASONE [Concomitant]
     Dosage: 4 MG, DAY 1- DAY 4
     Route: 065
     Dates: start: 20031001
  6. DEXAMETHASONE [Concomitant]
     Dosage: 40 MG, DAY 1-DAY 4 EVERY 3 WEEKS
     Route: 065
     Dates: start: 20040601, end: 20050701
  7. MELPHALAN [Concomitant]
     Dosage: 6 MG, DAY 1-DAY 7 EVERY 6 WEEKS
     Route: 065
     Dates: start: 20040601, end: 20050701
  8. CYCLOPHOSPHAMIDE [Concomitant]
     Dosage: 100 MG, QD
     Route: 065
     Dates: start: 20060101
  9. PREDNISONE TAB [Concomitant]
     Dosage: 50 MG, Q48H
     Route: 065
     Dates: start: 20060101
  10. CORTICOSTEROIDS [Concomitant]
     Route: 065
  11. AMLODIPINE [Concomitant]
     Indication: HYPERTENSION
     Dosage: 5 MG, QD
     Route: 065
     Dates: start: 20000101
  12. SERTRALINE [Concomitant]
     Indication: DEPRESSION
     Dosage: 50 MG, QD
     Route: 065
     Dates: start: 20041201, end: 20050301
  13. RISPERIDONE [Concomitant]
     Indication: DEPRESSION
     Dosage: 1 MG, QD
     Route: 065
     Dates: start: 20041201, end: 20050301
  14. RADIATION THERAPY [Concomitant]
     Indication: PAIN IN JAW
     Dosage: 35 GY/15
     Dates: start: 20050701, end: 20050801

REACTIONS (10)
  - ADRENAL INSUFFICIENCY [None]
  - DENTAL TREATMENT [None]
  - FISTULA [None]
  - GINGIVITIS [None]
  - OESOPHAGITIS [None]
  - OSTEITIS [None]
  - OSTEONECROSIS [None]
  - PERIODONTITIS [None]
  - TOOTH EXTRACTION [None]
  - WOUND DEBRIDEMENT [None]
